FAERS Safety Report 16727828 (Version 1)
Quarter: 2019Q3

REPORT INFORMATION
  Report Type: Report from Study
  Country: None (occurrence: US)
  Receive Date: 20190822
  Receipt Date: 20190822
  Transmission Date: 20191005
  Serious: Yes (Other)
  Sender: FDA-Public Use
  Company Number: US-ABBVIE-19K-163-2807780-00

PATIENT
  Sex: Female
  Weight: 97.61 kg

DRUGS (6)
  1. ARMOUR THYROID [Concomitant]
     Active Substance: THYROID, PORCINE
     Indication: THYROID DISORDER
  2. XANAX [Concomitant]
     Active Substance: ALPRAZOLAM
     Indication: ANXIETY
  3. HUMIRA [Suspect]
     Active Substance: ADALIMUMAB
     Indication: RHEUMATOID ARTHRITIS
     Route: 058
  4. OXYCODONE [Concomitant]
     Active Substance: OXYCODONE
     Indication: PAIN
  5. CYMBALTA [Concomitant]
     Active Substance: DULOXETINE HYDROCHLORIDE
     Indication: NEURALGIA
  6. TIZANIDINE. [Concomitant]
     Active Substance: TIZANIDINE
     Indication: MUSCLE SPASMS

REACTIONS (5)
  - Rotator cuff syndrome [Unknown]
  - Spinal operation [Unknown]
  - Medical device implantation [Unknown]
  - Cochlea implant [Unknown]
  - Surgery [Unknown]

NARRATIVE: CASE EVENT DATE: 2019
